FAERS Safety Report 21732143 (Version 1)
Quarter: 2022Q4

REPORT INFORMATION
  Report Type: Spontaneous
  Country: FR (occurrence: FR)
  Receive Date: 20221215
  Receipt Date: 20221215
  Transmission Date: 20230113
  Serious: Yes (Hospitalization)
  Sender: FDA-Public Use
  Company Number: None

PATIENT
  Age: 38 Year
  Sex: Male
  Weight: 73.6 kg

DRUGS (4)
  1. RAMIPRIL [Interacting]
     Active Substance: RAMIPRIL
     Indication: Hypertension
     Dosage: UNIT DOSE:5 MG , FREQUENCY TIME : 1 DAY, THERAPY START DATE : ASKU
     Dates: end: 20221027
  2. IBUPROFEN [Interacting]
     Active Substance: IBUPROFEN
     Indication: Arthralgia
     Dosage: UNIT DOSE: 1 DF , FREQUENCY TIME : 1 DAY, DURATION : 1 DAYS
     Dates: start: 20221011, end: 20221011
  3. FUROSEMIDE [Concomitant]
     Active Substance: FUROSEMIDE
     Indication: Hypertension
     Dosage: UNIT DOSE: 20 MG , FREQUENCY TIME : 1 DAY, THERAPY START DATE : ASKU
  4. NOVORAPID [Concomitant]
     Active Substance: INSULIN ASPART
     Indication: Type 1 diabetes mellitus
     Dosage: UNKNOWN, THERAPY START DATE : ASKU

REACTIONS (2)
  - Drug interaction [Recovered/Resolved with Sequelae]
  - Acute kidney injury [Recovered/Resolved with Sequelae]

NARRATIVE: CASE EVENT DATE: 20221021
